FAERS Safety Report 9315966 (Version 1)
Quarter: 2013Q2

REPORT INFORMATION
  Report Type: Spontaneous
  Country: US (occurrence: US)
  Receive Date: 20130530
  Receipt Date: 20130530
  Transmission Date: 20140414
  Serious: Yes (Other)
  Sender: FDA-Public Use
  Company Number: US-BIOGENIDEC-2013BI046840

PATIENT
  Sex: Female

DRUGS (14)
  1. AVONEX [Suspect]
     Indication: MULTIPLE SCLEROSIS
     Route: 030
     Dates: start: 20060405, end: 20130514
  2. ABILIFY [Concomitant]
     Route: 048
  3. BUPROPION [Concomitant]
     Route: 048
  4. CYCLOBENZAPRINE [Concomitant]
     Route: 048
  5. FUROSEMIDE [Concomitant]
     Route: 048
  6. GLIPIZIDE [Concomitant]
     Route: 048
  7. LEXAPRO [Concomitant]
     Route: 048
  8. METHYLPREDNISOLONE [Concomitant]
  9. LISINOPRIL [Concomitant]
     Route: 048
  10. LORAZEPAM [Concomitant]
     Route: 048
  11. LOVASTATIN [Concomitant]
     Route: 048
  12. METOPROLOL [Concomitant]
     Route: 048
  13. NEURONTIN [Concomitant]
     Route: 048
  14. TRAMADOL [Concomitant]
     Route: 048

REACTIONS (3)
  - Cervical spinal stenosis [Not Recovered/Not Resolved]
  - Parkinsonism [Not Recovered/Not Resolved]
  - Depressed mood [Not Recovered/Not Resolved]
